FAERS Safety Report 11905061 (Version 2)
Quarter: 2016Q1

REPORT INFORMATION
  Report Type: Report from Study
  Country: US (occurrence: US)
  Receive Date: 20160111
  Receipt Date: 20160302
  Transmission Date: 20160526
  Serious: Yes (Death)
  Sender: FDA-Public Use
  Company Number: US-ROCHE-1691163

PATIENT
  Age: 75 Year
  Sex: Female
  Weight: 83.99 kg

DRUGS (1)
  1. ESBRIET [Suspect]
     Active Substance: PIRFENIDONE
     Indication: IDIOPATHIC PULMONARY FIBROSIS
     Dosage: ONE 267 MG CAPSULE THRICE A DAY
     Route: 048
     Dates: start: 20150331

REACTIONS (1)
  - Death [Fatal]

NARRATIVE: CASE EVENT DATE: 20151227
